FAERS Safety Report 13039286 (Version 1)
Quarter: 2016Q4

REPORT INFORMATION
  Report Type: Spontaneous
  Country: US (occurrence: US)
  Receive Date: 20161216
  Receipt Date: 20161216
  Transmission Date: 20170207
  Serious: Yes (Hospitalization)
  Sender: FDA-Public Use
  Company Number: None

PATIENT
  Age: 64 Year
  Sex: Female
  Weight: 62.5 kg

DRUGS (1)
  1. TEMOZOLOMIDE. [Suspect]
     Active Substance: TEMOZOLOMIDE
     Dates: end: 20161208

REACTIONS (5)
  - Radiation injury [None]
  - Rash [None]
  - Rash generalised [None]
  - Erythema multiforme [None]
  - Skin exfoliation [None]

NARRATIVE: CASE EVENT DATE: 20161210
